FAERS Safety Report 4526388-9 (Version None)
Quarter: 2004Q4

REPORT INFORMATION
  Report Type: 
  Country: None (occurrence: None)
  Receive Date: 20041214
  Receipt Date: 20041202
  Transmission Date: 20050328
  Serious: Yes (Death)
  Sender: FDA-Public Use
  Company Number: FR-BRISTOL-MYERS SQUIBB COMPANY-12789673

PATIENT
  Age: 68 Year
  Sex: Male

DRUGS (19)
  1. ENDOXAN [Suspect]
     Indication: NON-HODGKIN'S LYMPHOMA
     Route: 042
     Dates: start: 20031016, end: 20031127
  2. CISPLATIN [Suspect]
     Indication: NON-HODGKIN'S LYMPHOMA
     Route: 042
     Dates: start: 20031222, end: 20040218
  3. ONCOVIN [Suspect]
     Indication: NON-HODGKIN'S LYMPHOMA
     Route: 042
     Dates: start: 20031016, end: 20031127
  4. MABTHERA [Suspect]
     Indication: NON-HODGKIN'S LYMPHOMA
     Dates: start: 20031016, end: 20040216
  5. ADRIBLASTINE [Suspect]
     Indication: NON-HODGKIN'S LYMPHOMA
     Dates: start: 20031016, end: 20031127
  6. ARACYTINE [Suspect]
     Indication: NON-HODGKIN'S LYMPHOMA
     Route: 042
     Dates: start: 20031222, end: 20040218
  7. DEXAMETHASONE [Suspect]
     Indication: NON-HODGKIN'S LYMPHOMA
     Route: 042
     Dates: start: 20031222, end: 20040219
  8. CORTANCYL [Suspect]
     Indication: NON-HODGKIN'S LYMPHOMA
     Dates: start: 20031016, end: 20031127
  9. PREDNISONE TAB [Suspect]
     Indication: NON-HODGKIN'S LYMPHOMA
  10. CELECTOL [Concomitant]
  11. TRIATEC [Concomitant]
  12. PERMIXON [Concomitant]
  13. ASPEGIC 325 [Concomitant]
  14. NEULASTA [Concomitant]
     Dates: start: 20031017, end: 20040221
  15. ZOPHREN [Concomitant]
     Dates: start: 20031016, end: 20040216
  16. FASTURTEC [Concomitant]
     Dates: start: 20040119, end: 20040121
  17. PARACETAMOL [Concomitant]
     Dates: start: 20031016, end: 20031127
  18. POLARAMIN [Concomitant]
     Dates: start: 20031016, end: 20040216
  19. SOLU-MEDROL [Concomitant]
     Dates: start: 20031222, end: 20040216

REACTIONS (1)
  - PULMONARY FIBROSIS [None]
